FAERS Safety Report 21554164 (Version 7)
Quarter: 2023Q1

REPORT INFORMATION
  Report Type: Report from Study
  Country: US (occurrence: None)
  Receive Date: 20221104
  Receipt Date: 20230201
  Transmission Date: 20230417
  Serious: Yes (Death, Hospitalization)
  Sender: FDA-Public Use
  Company Number: US-ROCHE-3187653

PATIENT
  Age: 74 Year
  Sex: Female
  Weight: 65.95 kg

DRUGS (44)
  1. OBINUTUZUMAB [Suspect]
     Active Substance: OBINUTUZUMAB
     Indication: Follicular lymphoma
     Dosage: DOSE OF LAST OBINUTUZUMAB ADMINISTERED PRIOR TO AE/SAE ONSET: 1000 MG?DATE OF MOST RECENT DOSE OF OB
     Route: 042
     Dates: start: 20200204
  2. CALTRATE WITH VITAMIN D [Concomitant]
     Active Substance: CALCIUM CARBONATE\CHOLECALCIFEROL
  3. PRILOSEC [Concomitant]
     Active Substance: OMEPRAZOLE MAGNESIUM
     Indication: Gastrooesophageal reflux disease
  4. SINGULAIR [Concomitant]
     Active Substance: MONTELUKAST SODIUM
     Indication: Asthma
  5. SYMBICORT [Concomitant]
     Active Substance: BUDESONIDE\FORMOTEROL FUMARATE DIHYDRATE
     Indication: Asthma
  6. SYNTHROID [Concomitant]
     Active Substance: LEVOTHYROXINE SODIUM
     Indication: Hypothyroidism
  7. COLACE [Concomitant]
     Active Substance: DOCUSATE SODIUM
     Indication: Constipation
  8. DOXYCYCLINE [Concomitant]
     Active Substance: DOXYCYCLINE
     Indication: Limb injury
     Dates: start: 20220628, end: 20220704
  9. PALONOSETRON [Concomitant]
     Active Substance: PALONOSETRON
     Dosage: CYCLE 1 DAY 1, CYCLE 02 DAY 1- 03/MAR/2020, CYCLE 03 DAY 1- 23/MAR/2020, CYCLE 04 DAY 1- 13/APR/2020
     Route: 042
     Dates: start: 20200204, end: 20200204
  10. PALONOSETRON [Concomitant]
     Active Substance: PALONOSETRON
     Dates: start: 20200303, end: 20200303
  11. PALONOSETRON [Concomitant]
     Active Substance: PALONOSETRON
     Dates: start: 20200323, end: 20200323
  12. PALONOSETRON [Concomitant]
     Active Substance: PALONOSETRON
     Dates: start: 20200413, end: 20200413
  13. PALONOSETRON [Concomitant]
     Active Substance: PALONOSETRON
     Dates: start: 20200504, end: 20200504
  14. PALONOSETRON [Concomitant]
     Active Substance: PALONOSETRON
     Dates: start: 20200526, end: 20200526
  15. PALONOSETRON [Concomitant]
     Active Substance: PALONOSETRON
     Dates: start: 20200615, end: 20200615
  16. PALONOSETRON [Concomitant]
     Active Substance: PALONOSETRON
     Dates: start: 20200706, end: 20200706
  17. DEXAMETHASONE [Concomitant]
     Active Substance: DEXAMETHASONE
     Dosage: CYCLE 1 DAY 1,
     Route: 042
     Dates: start: 20200204, end: 20200204
  18. FOSAPREPITANT [Concomitant]
     Active Substance: FOSAPREPITANT
     Dosage: CYCLE 1 DAY 1, CYCLE 02 DAY 1- 03/MAR/2020, CYCLE 03 DAY 1- 23/MAR/2020, CYCLE 04 DAY 1- 13/APR/2020
     Route: 042
     Dates: start: 20200204, end: 20200204
  19. FOSAPREPITANT [Concomitant]
     Active Substance: FOSAPREPITANT
     Dates: start: 20220303, end: 20220303
  20. FOSAPREPITANT [Concomitant]
     Active Substance: FOSAPREPITANT
     Dates: start: 20200323, end: 20200323
  21. FOSAPREPITANT [Concomitant]
     Active Substance: FOSAPREPITANT
     Dates: start: 20200413, end: 20200413
  22. FOSAPREPITANT [Concomitant]
     Active Substance: FOSAPREPITANT
     Dates: start: 20200504, end: 20200504
  23. FOSAPREPITANT [Concomitant]
     Active Substance: FOSAPREPITANT
     Dates: start: 20220526, end: 20220526
  24. FOSAPREPITANT [Concomitant]
     Active Substance: FOSAPREPITANT
     Dates: start: 20200615, end: 20200615
  25. FOSAPREPITANT [Concomitant]
     Active Substance: FOSAPREPITANT
     Dates: start: 20200706, end: 20200706
  26. ACETAMINOPHEN [Concomitant]
     Active Substance: ACETAMINOPHEN
     Dosage: CYCLE 1 DAY 1, CYCLE 1 DAY 8- 11/FEB/2020, CYCLE 1 DAY 15- 25/FEB/2020, CYCLE 02 DAY 1- 03/MAR/2020,
     Route: 048
     Dates: start: 20200204, end: 20200204
  27. ACETAMINOPHEN [Concomitant]
     Active Substance: ACETAMINOPHEN
     Dates: start: 20200323, end: 20200323
  28. ACETAMINOPHEN [Concomitant]
     Active Substance: ACETAMINOPHEN
     Dates: start: 20200413, end: 20200413
  29. ACETAMINOPHEN [Concomitant]
     Active Substance: ACETAMINOPHEN
     Dates: start: 20200504, end: 20200504
  30. ACETAMINOPHEN [Concomitant]
     Active Substance: ACETAMINOPHEN
     Dates: start: 20220526, end: 20220526
  31. ACETAMINOPHEN [Concomitant]
     Active Substance: ACETAMINOPHEN
     Dates: start: 20200615, end: 20200615
  32. ACETAMINOPHEN [Concomitant]
     Active Substance: ACETAMINOPHEN
     Dates: start: 20200706, end: 20200706
  33. ACETAMINOPHEN [Concomitant]
     Active Substance: ACETAMINOPHEN
     Dates: start: 20220407, end: 20220407
  34. ACETAMINOPHEN [Concomitant]
     Active Substance: ACETAMINOPHEN
     Dates: start: 20220602, end: 20220602
  35. DIPHENHYDRAMINE [Concomitant]
     Active Substance: DIPHENHYDRAMINE
     Dosage: CYCLE 1 DAY 1, CYCLE 1 DAY 8- 11/FEB/2020, CYCLE 1 DAY 15- 25/FEB/2020, CYCLE 02 DAY 1- 03/MAR/2020,
     Route: 048
     Dates: start: 20200204, end: 20200204
  36. DIPHENHYDRAMINE [Concomitant]
     Active Substance: DIPHENHYDRAMINE
     Dates: start: 20220323, end: 20220323
  37. DIPHENHYDRAMINE [Concomitant]
     Active Substance: DIPHENHYDRAMINE
     Dates: start: 20200413, end: 20200413
  38. DIPHENHYDRAMINE [Concomitant]
     Active Substance: DIPHENHYDRAMINE
     Dates: start: 20200504, end: 20200504
  39. DIPHENHYDRAMINE [Concomitant]
     Active Substance: DIPHENHYDRAMINE
     Dates: start: 20200526, end: 20200526
  40. DIPHENHYDRAMINE [Concomitant]
     Active Substance: DIPHENHYDRAMINE
     Dates: start: 20200615, end: 20200615
  41. DIPHENHYDRAMINE [Concomitant]
     Active Substance: DIPHENHYDRAMINE
     Dates: start: 20200706, end: 20200706
  42. DIPHENHYDRAMINE [Concomitant]
     Active Substance: DIPHENHYDRAMINE
     Dates: start: 20220407, end: 20220407
  43. DIPHENHYDRAMINE [Concomitant]
     Active Substance: DIPHENHYDRAMINE
     Dates: start: 20220602, end: 20220602
  44. EMERGEN-C [Concomitant]
     Active Substance: VITAMINS

REACTIONS (2)
  - COVID-19 [Fatal]
  - Pneumonia [Not Recovered/Not Resolved]

NARRATIVE: CASE EVENT DATE: 20220727
